FAERS Safety Report 12765499 (Version 1)
Quarter: 2016Q3

REPORT INFORMATION
  Report Type: Spontaneous
  Country: US (occurrence: US)
  Receive Date: 20160921
  Receipt Date: 20160921
  Transmission Date: 20161109
  Serious: Yes (Hospitalization, Other)
  Sender: FDA-Public Use
  Company Number: US-ELI_LILLY_AND_COMPANY-US201609004872

PATIENT
  Age: 61 Year
  Sex: Female

DRUGS (2)
  1. HUMULIN N [Suspect]
     Active Substance: INSULIN HUMAN
     Dosage: 85 U, QD
     Route: 065
  2. HUMULIN N [Suspect]
     Active Substance: INSULIN HUMAN
     Indication: TYPE 2 DIABETES MELLITUS
     Dosage: 85 U, QD
     Route: 065
     Dates: start: 2011

REACTIONS (5)
  - Visual impairment [Not Recovered/Not Resolved]
  - Cerebrovascular accident [Recovered/Resolved]
  - Memory impairment [Not Recovered/Not Resolved]
  - Seizure [Recovered/Resolved]
  - Cerebral haemorrhage [Recovered/Resolved]

NARRATIVE: CASE EVENT DATE: 201603
